FAERS Safety Report 5331333-2 (Version None)
Quarter: 2007Q2

REPORT INFORMATION
  Report Type: 
  Country: None (occurrence: None)
  Receive Date: 20070522
  Receipt Date: 20070514
  Transmission Date: 20071010
  Serious: Yes (Hospitalization)
  Sender: FDA-Public Use
  Company Number: JP-BAYER-200710325BYL

PATIENT
  Age: 57 Year
  Sex: Male
  Weight: 60 kg

DRUGS (2)
  1. GLUCOBAY [Suspect]
     Indication: SUICIDE ATTEMPT
     Dosage: TOTAL DAILY DOSE: 4000 MG  UNIT DOSE: 50 MG
     Route: 048
     Dates: start: 20070426, end: 20070426
  2. ZYRTEC [Concomitant]
     Indication: SUICIDE ATTEMPT
     Dosage: TOTAL DAILY DOSE: 350 MG  UNIT DOSE: 10 MG
     Route: 048
     Dates: start: 20070426, end: 20070426

REACTIONS (1)
  - INTENTIONAL OVERDOSE [None]
